FAERS Safety Report 4885002-3 (Version None)
Quarter: 2006Q1

REPORT INFORMATION
  Report Type: 
  Country: None (occurrence: None)
  Receive Date: 20060119
  Receipt Date: 20050304
  Transmission Date: 20060701
  Serious: Yes (Hospitalization, Other)
  Sender: FDA-Public Use
  Company Number: US-MERCK-0503USA00999

PATIENT
  Age: 69 Year
  Sex: Female
  Weight: 59 kg

DRUGS (4)
  1. VIOXX [Suspect]
     Indication: BACK PAIN
     Route: 048
     Dates: start: 20000701, end: 20041001
  2. LIPITOR [Concomitant]
     Route: 065
  3. CALAN [Concomitant]
     Route: 065
  4. TRIAMTERENE [Concomitant]
     Route: 065

REACTIONS (6)
  - BACK DISORDER [None]
  - BALANCE DISORDER [None]
  - CEREBROVASCULAR ACCIDENT [None]
  - LIMB DISCOMFORT [None]
  - NERVE COMPRESSION [None]
  - TRANSIENT ISCHAEMIC ATTACK [None]
